FAERS Safety Report 20834853 (Version 2)
Quarter: 2022Q3

REPORT INFORMATION
  Report Type: Spontaneous
  Country: GB (occurrence: GB)
  Receive Date: 20220516
  Receipt Date: 20220706
  Transmission Date: 20221027
  Serious: Yes (Hospitalization, Other)
  Sender: FDA-Public Use
  Company Number: GB-MYLANLABS-2022M1034967

PATIENT
  Age: 69 Year
  Sex: Female
  Weight: 38.7 kg

DRUGS (3)
  1. CLOZARIL [Suspect]
     Active Substance: CLOZAPINE
     Indication: Catatonia
     Dosage: UNK
     Route: 048
     Dates: start: 20220310, end: 20220412
  2. CLOZARIL [Suspect]
     Active Substance: CLOZAPINE
     Dosage: 125 MILLIGRAM, QD (125 MG OD (TEATIME))
     Route: 048
     Dates: start: 20220512
  3. CLOZARIL [Suspect]
     Active Substance: CLOZAPINE
     Dosage: 50 MILLIGRAM, QD (500 MG OD (BREAKFAST))
     Route: 048
     Dates: start: 20220512

REACTIONS (3)
  - Platelet count increased [Recovered/Resolved]
  - Pneumonia [Recovered/Resolved]
  - Off label use [Unknown]

NARRATIVE: CASE EVENT DATE: 20220412
